FAERS Safety Report 23096593 (Version 1)
Quarter: 2023Q4

REPORT INFORMATION
  Report Type: Spontaneous
  Country: US (occurrence: None)
  Receive Date: 20231022
  Receipt Date: 20231022
  Transmission Date: 20240109
  Serious: No
  Sender: FDA-Public Use
  Company Number: None

PATIENT
  Age: 61 Year
  Sex: Female
  Weight: 34.65 kg

DRUGS (1)
  1. TYMLOS [Suspect]
     Active Substance: ABALOPARATIDE
     Indication: Osteoporosis
     Dosage: FREQUENCY : AT BEDTIME;?
     Route: 058
     Dates: start: 20230728, end: 20230818

REACTIONS (5)
  - Abdominal distension [None]
  - Peripheral swelling [None]
  - Swelling face [None]
  - Eye swelling [None]
  - Therapy cessation [None]

NARRATIVE: CASE EVENT DATE: 20230804
